FAERS Safety Report 13462327 (Version 1)
Quarter: 2017Q2

REPORT INFORMATION
  Report Type: Spontaneous
  Country: US (occurrence: US)
  Receive Date: 20170420
  Receipt Date: 20170420
  Transmission Date: 20170830
  Serious: No
  Sender: FDA-Public Use
  Company Number: US-TEVA-762235ACC

PATIENT
  Age: 18 Year
  Sex: Female
  Weight: 72.64 kg

DRUGS (2)
  1. PLAN B ONE-STEP [Suspect]
     Active Substance: LEVONORGESTREL
     Indication: POST COITAL CONTRACEPTION
     Dates: start: 201409, end: 201409
  2. ZOVIA [Concomitant]
     Active Substance: ETHINYL ESTRADIOL\ETHYNODIOL DIACETATE
     Indication: CONTRACEPTION

REACTIONS (1)
  - Dysmenorrhoea [Recovered/Resolved]

NARRATIVE: CASE EVENT DATE: 201409
